FAERS Safety Report 8251076-5 (Version None)
Quarter: 2012Q1

REPORT INFORMATION
  Report Type: 
  Country: None (occurrence: None)
  Receive Date: 20120328
  Receipt Date: 20120320
  Transmission Date: 20120608
  Serious: Yes (Other)
  Sender: FDA-Public Use
  Company Number: 2012SA019538

PATIENT
  Sex: Male

DRUGS (1)
  1. MENTHOL / UNKNOWN / UNKNOWN [Suspect]
     Dosage: ONCE;TOPICAL
     Route: 061
     Dates: start: 20120320, end: 20120320

REACTIONS (2)
  - THERMAL BURN [None]
  - PAIN [None]
